FAERS Safety Report 24966843 (Version 4)
Quarter: 2025Q2

REPORT INFORMATION
  Report Type: Spontaneous
  Country: JP (occurrence: JP)
  Receive Date: 20250213
  Receipt Date: 20250424
  Transmission Date: 20250716
  Serious: Yes (Life-Threatening, Hospitalization)
  Sender: MERCK SHARP & DOHME LLC
  Company Number: JP-009507513-2254440

PATIENT
  Age: 74 Year
  Sex: Female
  Weight: 41.6 kg

DRUGS (10)
  1. SUGAMMADEX SODIUM [Suspect]
     Active Substance: SUGAMMADEX SODIUM
     Indication: Neuromuscular blockade reversal
     Route: 042
     Dates: start: 20250129, end: 20250129
  2. DESFLURANE [Concomitant]
     Active Substance: DESFLURANE
     Indication: Induction and maintenance of anaesthesia
     Route: 055
     Dates: start: 20250129, end: 20250129
  3. PROPOFOL [Concomitant]
     Active Substance: PROPOFOL
     Indication: Induction of anaesthesia
     Dosage: 70 MG/DAY
     Route: 042
     Dates: start: 20250129, end: 20250129
  4. ROCURONIUM BROMIDE [Concomitant]
     Active Substance: ROCURONIUM BROMIDE
     Indication: Induction and maintenance of anaesthesia
     Route: 042
     Dates: start: 20250129, end: 20250129
  5. FENTANYL CITRATE [Concomitant]
     Active Substance: FENTANYL CITRATE
     Indication: Procedural pain
     Route: 042
     Dates: start: 20250129, end: 20250129
  6. REMIFENTANIL HYDROCHLORIDE [Concomitant]
     Active Substance: REMIFENTANIL HYDROCHLORIDE
     Indication: Induction and maintenance of anaesthesia
     Route: 042
     Dates: start: 20250129, end: 20250129
  7. EPHEDRINE HYDROCHLORIDE [Concomitant]
     Active Substance: EPHEDRINE HYDROCHLORIDE
     Route: 042
     Dates: start: 20250129, end: 20250129
  8. PHENYLEPHRINE HYDROCHLORIDE [Concomitant]
     Active Substance: PHENYLEPHRINE HYDROCHLORIDE
     Route: 042
     Dates: start: 20250129, end: 20250129
  9. ACETAMINOPHEN [Concomitant]
     Active Substance: ACETAMINOPHEN
     Indication: Analgesic therapy
     Route: 042
     Dates: start: 20250129, end: 20250129
  10. OXYGEN [Concomitant]
     Active Substance: OXYGEN

REACTIONS (1)
  - Anaphylactic shock [Recovered/Resolved]

NARRATIVE: CASE EVENT DATE: 20250129
